FAERS Safety Report 23885845 (Version 1)
Quarter: 2024Q2

REPORT INFORMATION
  Report Type: Spontaneous
  Country: US (occurrence: None)
  Receive Date: 20240522
  Receipt Date: 20240522
  Transmission Date: 20240716
  Serious: Yes (Other)
  Sender: FDA-Public Use
  Company Number: None

PATIENT
  Age: 30 Year
  Sex: Female
  Weight: 50.4 kg

DRUGS (2)
  1. SERTRALINE [Suspect]
     Active Substance: SERTRALINE HYDROCHLORIDE
     Indication: Generalised anxiety disorder
     Dosage: 12.5 MG DAILY ORAL
     Route: 048
     Dates: start: 20231014, end: 20231027
  2. LORAZEPAM [Concomitant]
     Active Substance: LORAZEPAM
     Dates: start: 20180730

REACTIONS (3)
  - Libido decreased [None]
  - Vulvovaginal dryness [None]
  - Anorgasmia [None]

NARRATIVE: CASE EVENT DATE: 20231027
